FAERS Safety Report 24210380 (Version 2)
Quarter: 2024Q4

REPORT INFORMATION
  Report Type: Spontaneous
  Country: CA (occurrence: CA)
  Receive Date: 20240814
  Receipt Date: 20241023
  Transmission Date: 20250115
  Serious: Yes (Death, Other)
  Sender: SANDOZ
  Company Number: CA-SANDOZ-SDZ2024CA072508

PATIENT
  Age: 55 Year
  Sex: Female

DRUGS (12)
  1. CIPROFLOXACIN [Suspect]
     Active Substance: CIPROFLOXACIN
     Indication: Infection
     Dosage: UNK
     Route: 065
  2. ERTAPENEM [Suspect]
     Active Substance: ERTAPENEM
     Indication: Infection
     Dosage: UNK
     Route: 065
  3. LINEZOLID [Suspect]
     Active Substance: LINEZOLID
     Indication: Infection
     Dosage: UNK
     Route: 065
  4. TAVNEOS [Suspect]
     Active Substance: AVACOPAN
     Indication: Granulomatosis with polyangiitis
     Dosage: 30 MG, BID
     Route: 048
  5. TAVNEOS [Suspect]
     Active Substance: AVACOPAN
     Indication: Lung disorder
     Dosage: UNK
     Route: 065
  6. FLUCONAZOLE [Concomitant]
     Active Substance: FLUCONAZOLE
     Indication: Product used for unknown indication
     Dosage: UNK
     Route: 065
  7. HIZENTRA [Concomitant]
     Active Substance: HUMAN IMMUNOGLOBULIN G
     Indication: Immune system disorder
     Dosage: UNK
     Route: 065
  8. HIZENTRA [Concomitant]
     Active Substance: HUMAN IMMUNOGLOBULIN G
     Indication: Granulomatosis with polyangiitis
  9. Immunoglobulin [Concomitant]
     Indication: Lung disorder
     Dosage: UNK
     Route: 058
  10. PREDNISONE [Concomitant]
     Active Substance: PREDNISONE
     Indication: Granulomatosis with polyangiitis
     Dosage: UNK
     Route: 065
  11. RITUXIMAB [Concomitant]
     Active Substance: RITUXIMAB
     Indication: Lung disorder
     Dosage: 1 G, BID
     Route: 065
  12. RITUXIMAB [Concomitant]
     Active Substance: RITUXIMAB
     Indication: Granulomatosis with polyangiitis

REACTIONS (13)
  - Death [Fatal]
  - Seizure [Fatal]
  - Cardiac arrest [Fatal]
  - Infection [Fatal]
  - Aspiration [Fatal]
  - Cytomegalovirus infection [Fatal]
  - Fungal infection [Fatal]
  - Hypoxia [Fatal]
  - Pseudomonas infection [Fatal]
  - Raoultella ornithinolytica infection [Fatal]
  - Serratia infection [Fatal]
  - Staphylococcal infection [Fatal]
  - Off label use [Fatal]
